FAERS Safety Report 16924378 (Version 1)
Quarter: 2019Q4

REPORT INFORMATION
  Report Type: Spontaneous
  Country: US (occurrence: US)
  Receive Date: 20191016
  Receipt Date: 20191016
  Transmission Date: 20200122
  Serious: Yes (Life-Threatening, Hospitalization)
  Sender: FDA-Public Use
  Company Number: US-MYLANLABS-2019M1097394

PATIENT
  Age: 26 Year
  Sex: Female

DRUGS (1)
  1. DIPHENHYDRAMINE. [Suspect]
     Active Substance: DIPHENHYDRAMINE
     Indication: PRODUCT USED FOR UNKNOWN INDICATION
     Route: 048

REACTIONS (8)
  - Suicide attempt [Recovering/Resolving]
  - Delirium [Recovering/Resolving]
  - Pyrexia [Recovering/Resolving]
  - Status epilepticus [Recovered/Resolved]
  - Toxicity to various agents [Recovering/Resolving]
  - Tachycardia [Recovered/Resolved]
  - Hypotension [Recovering/Resolving]
  - Intentional overdose [Recovering/Resolving]
